FAERS Safety Report 11725616 (Version 1)
Quarter: 2015Q4

REPORT INFORMATION
  Report Type: Spontaneous
  Country: US (occurrence: US)
  Receive Date: 20151111
  Receipt Date: 20151111
  Transmission Date: 20160304
  Serious: No
  Sender: FDA-Public Use
  Company Number: US-UCBSA-2015028071

PATIENT
  Age: 58 Year
  Sex: Male

DRUGS (2)
  1. VIMPAT [Suspect]
     Active Substance: LACOSAMIDE
     Indication: CRANIOCEREBRAL INJURY
     Dosage: 225 MG, 2X/DAY (BID)
     Dates: start: 201508, end: 201508
  2. VIMPAT [Suspect]
     Active Substance: LACOSAMIDE
     Indication: PARTIAL SEIZURES
     Dosage: 150 MGS IN THE AM AND 225 MG IN NIGHT, 2X/DAY (BID)
     Dates: end: 201508

REACTIONS (9)
  - Fatigue [Not Recovered/Not Resolved]
  - Irritability [Not Recovered/Not Resolved]
  - Asthenia [Not Recovered/Not Resolved]
  - Seizure [Unknown]
  - Hypersomnia [Not Recovered/Not Resolved]
  - Overdose [Unknown]
  - Partial seizures [Not Recovered/Not Resolved]
  - Confusional state [Not Recovered/Not Resolved]
  - Off label use [Unknown]

NARRATIVE: CASE EVENT DATE: 201508
